FAERS Safety Report 8014820-8 (Version None)
Quarter: 2011Q4

REPORT INFORMATION
  Report Type: 
  Country: None (occurrence: None)
  Receive Date: 20111229
  Receipt Date: 20111219
  Transmission Date: 20120403
  Serious: Yes (Other)
  Sender: FDA-Public Use
  Company Number: NO-BAUSCH-2011BL009045

PATIENT
  Age: 84 Year
  Sex: Male

DRUGS (8)
  1. PHENYLEPHRINE HCL [Suspect]
     Indication: PREOPERATIVE CARE
     Route: 061
  2. DEXAMETHASONE [Suspect]
     Route: 061
  3. LIDOCAINE [Suspect]
     Indication: ANAESTHESIA
     Route: 031
  4. DEXAMETHASONE [Suspect]
     Indication: PREOPERATIVE CARE
     Route: 061
  5. PHENYLEPHRINE HCL [Suspect]
     Route: 031
  6. CYCLOPENTOLATE HCL [Suspect]
     Indication: PREOPERATIVE CARE
     Route: 061
  7. CEFUROXIME [Suspect]
     Indication: ANTIBIOTIC PROPHYLAXIS
     Route: 031
  8. POVIDONE IODINE [Suspect]
     Indication: PREOPERATIVE CARE
     Route: 047

REACTIONS (1)
  - ENDOPHTHALMITIS [None]
